FAERS Safety Report 6761465-3 (Version None)
Quarter: 2010Q2

REPORT INFORMATION
  Report Type: 
  Country: None (occurrence: None)
  Receive Date: 20100607
  Receipt Date: 20071218
  Transmission Date: 20101027
  Serious: Yes (Hospitalization)
  Sender: FDA-Public Use
  Company Number: LEO-2010-00460(0)

PATIENT
  Sex: Female
  Weight: 2.9 kg

DRUGS (13)
  1. INNOHEP [Suspect]
     Indication: DRUG EXPOSURE DURING PREGNANCY
     Dosage: TRANSPLACENTAL
     Route: 064
     Dates: start: 20060426, end: 20061013
  2. FOLIC ACID [Concomitant]
  3. CEFADROXIL [Concomitant]
  4. METOCLOPRAMIDE (METOCLOPRAMIDE) [Concomitant]
  5. PARACETAMOL (PARACETAMOL) [Concomitant]
  6. CYCLIZINE (CYCLIZINE) [Concomitant]
  7. THIAMINE (THIAMINE) [Concomitant]
  8. STEMETIL (PROCHLORPERAZINE) [Concomitant]
  9. FERROUS SULFATE TAB [Concomitant]
  10. LACTULOSE [Concomitant]
  11. BETAMETHASONE [Concomitant]
  12. CODEINE PHOSPHATE (CODEINE PHOSPHATE) [Concomitant]
  13. HYDROXYKOBALAMIN (HYDROXOCOBALAMIN) [Concomitant]

REACTIONS (2)
  - MATERNAL DRUGS AFFECTING FOETUS [None]
  - PREMATURE BABY [None]
